FAERS Safety Report 25268786 (Version 1)
Quarter: 2025Q2

REPORT INFORMATION
  Report Type: Spontaneous
  Country: US (occurrence: None)
  Receive Date: 20250505
  Receipt Date: 20250505
  Transmission Date: 20250716
  Serious: Yes (Death)
  Sender: FDA-CTU
  Company Number: None

PATIENT
  Age: 79 Year
  Sex: Female

DRUGS (11)
  1. BOTOX [Suspect]
     Active Substance: ONABOTULINUMTOXINA
     Indication: Blepharospasm
     Dates: start: 20180213, end: 20250417
  2. ALENDRONATE [Concomitant]
     Active Substance: ALENDRONATE SODIUM
  3. ATORVASTATIN [Concomitant]
     Active Substance: ATORVASTATIN
  4. AZATHIOPRINE [Concomitant]
     Active Substance: AZATHIOPRINE
  5. BABY ASPIRIN CHW [Concomitant]
  6. BIOTIN [Concomitant]
     Active Substance: BIOTIN
  7. BUMETANIDE [Concomitant]
     Active Substance: BUMETANIDE
  8. CARVEDILOL [Concomitant]
     Active Substance: CARVEDILOL
  9. DIGOXIN [Concomitant]
     Active Substance: DIGOXIN
  10. DOFETILIDE [Concomitant]
     Active Substance: DOFETILIDE
  11. EFFEXOR XR [Concomitant]
     Active Substance: VENLAFAXINE HYDROCHLORIDE

REACTIONS (1)
  - Death [None]

NARRATIVE: CASE EVENT DATE: 20250501
